FAERS Safety Report 22298747 (Version 3)
Quarter: 2023Q4

REPORT INFORMATION
  Report Type: Report from Study
  Country: US (occurrence: US)
  Receive Date: 20230509
  Receipt Date: 20231101
  Transmission Date: 20240110
  Serious: Yes (Other)
  Sender: FDA-Public Use
  Company Number: US-ABBVIE-4756879

PATIENT
  Sex: Female
  Weight: 86.182 kg

DRUGS (2)
  1. HUMIRA [Suspect]
     Active Substance: ADALIMUMAB
     Indication: Crohn^s disease
     Dosage: FORM STRENGTH: 40 MILLIGRAM/CITRATE FREE
     Route: 058
     Dates: start: 20230330
  2. HUMIRA [Suspect]
     Active Substance: ADALIMUMAB
     Dosage: FORM STRENGTH: 40 MILLIGRAM/CITRATE FREE/THERAPY END DATE: MAR 2023
     Route: 058
     Dates: start: 20230301

REACTIONS (16)
  - Colostomy [Recovering/Resolving]
  - Lumbar spinal stenosis [Unknown]
  - Frequent bowel movements [Recovering/Resolving]
  - Neck pain [Unknown]
  - Amnesia [Unknown]
  - Faecal volume increased [Recovered/Resolved]
  - Headache [Recovered/Resolved]
  - Haemorrhoids [Unknown]
  - Scoliosis [Unknown]
  - Discomfort [Unknown]
  - Back pain [Unknown]
  - Abdominal distension [Unknown]
  - Colostomy [Unknown]
  - Drug hypersensitivity [Unknown]
  - Pruritus allergic [Unknown]
  - Disturbance in attention [Unknown]

NARRATIVE: CASE EVENT DATE: 20230101
